FAERS Safety Report 9895979 (Version 2)
Quarter: 2014Q1

REPORT INFORMATION
  Report Type: Spontaneous
  Country: US (occurrence: US)
  Receive Date: 20140213
  Receipt Date: 20140213
  Transmission Date: 20141002
  Serious: No
  Sender: FDA-Public Use
  Company Number: US-BRISTOL-MYERS SQUIBB COMPANY-17409558

PATIENT
  Age: 71 Year
  Sex: Female

DRUGS (4)
  1. ORENCIA FOR INJ 250 MG/VIAL [Suspect]
     Indication: RHEUMATOID ARTHRITIS
     Route: 042
     Dates: start: 20090716, end: 20130221
  2. PREMARIN [Suspect]
  3. MELOXICAM [Suspect]
  4. LEVOTHYROXINE [Concomitant]

REACTIONS (1)
  - Hyperhidrosis [Not Recovered/Not Resolved]
